FAERS Safety Report 19965467 (Version 1)
Quarter: 2021Q4

REPORT INFORMATION
  Report Type: Spontaneous
  Country: US (occurrence: US)
  Receive Date: 20211018
  Receipt Date: 20211018
  Transmission Date: 20220303
  Serious: No
  Sender: FDA-Public Use
  Company Number: US-MYLANLABS-2021M1071459

PATIENT
  Sex: Female

DRUGS (1)
  1. XULANE [Suspect]
     Active Substance: ETHINYL ESTRADIOL\NORELGESTROMIN
     Indication: Contraception
     Dosage: 150/35 MCG, QD (ONCE WEEKLY FOR 3 WEEKS THEN 1 WEEK OFF )
     Route: 062
     Dates: start: 20211004

REACTIONS (2)
  - Product dose omission issue [Not Recovered/Not Resolved]
  - Product adhesion issue [Not Recovered/Not Resolved]

NARRATIVE: CASE EVENT DATE: 20211004
